FAERS Safety Report 22117134 (Version 1)
Quarter: 2023Q1

REPORT INFORMATION
  Report Type: Report from Study
  Country: US (occurrence: US)
  Receive Date: 20230320
  Receipt Date: 20230320
  Transmission Date: 20230417
  Serious: Yes (Hospitalization, Other)
  Sender: FDA-Public Use
  Company Number: US-UCBSA-2022051720

PATIENT
  Sex: Male

DRUGS (2)
  1. BRIVARACETAM [Suspect]
     Active Substance: BRIVARACETAM
     Indication: Epilepsy
     Dosage: 100 MILLIGRAM, 2X/DAY (BID)
  2. BRIVARACETAM [Suspect]
     Active Substance: BRIVARACETAM
     Indication: Seizure

REACTIONS (3)
  - Spinal operation [Not Recovered/Not Resolved]
  - Neck surgery [Not Recovered/Not Resolved]
  - Tremor [Not Recovered/Not Resolved]
